FAERS Safety Report 23920929 (Version 2)
Quarter: 2024Q2

REPORT INFORMATION
  Report Type: Spontaneous
  Country: CH (occurrence: CH)
  Receive Date: 20240530
  Receipt Date: 20240618
  Transmission Date: 20240716
  Serious: Yes (Hospitalization)
  Sender: FDA-Public Use
  Company Number: CH-AMERICAN REGENT INC-2024002048

PATIENT
  Age: 57 Year
  Sex: Male
  Weight: 75 kg

DRUGS (11)
  1. VENOFER [Suspect]
     Active Substance: IRON SUCROSE
     Indication: Iron deficiency anaemia
     Dosage: IT IS UNCLEAR WHEN THERAPY WITH VENOFER WAS INITIATED AND WHEN THE LAST DOSE WAS EXACTLY GIVEN (200
     Route: 042
     Dates: end: 202403
  2. FERINJECT [Suspect]
     Active Substance: FERRIC CARBOXYMALTOSE
     Indication: Iron deficiency anaemia
     Dosage: IT IS UNCLEAR WHETHER THE 1500 MG WERE SPLIT UP IN SEVERAL ADMINISTRATIONS, LAST APPLICATION 2024. (
     Route: 042
     Dates: end: 20240405
  3. EPCLUSA [Concomitant]
     Active Substance: SOFOSBUVIR\VELPATASVIR
     Indication: Chronic hepatitis C
     Dosage: 400/100 MG 1-0-0 (1 DOSAGE FORM, 1 IN 1 D)
     Route: 048
     Dates: start: 20240320
  4. LACTITOL [Concomitant]
     Active Substance: LACTITOL
     Indication: Product used for unknown indication
     Dosage: START DATE UNKNOWN, ML 30-30-0 (30 ML, 2 IN 24 HR)
     Route: 048
  5. TORSEMIDE [Concomitant]
     Active Substance: TORSEMIDE
     Indication: Product used for unknown indication
     Dosage: START DATE UNKNOWN (5 MG 1-0-0-0) (5 MG,1 IN 1 D)
     Route: 048
  6. CALCIUM\CHOLECALCIFEROL [Concomitant]
     Active Substance: CALCIUM\CHOLECALCIFEROL
     Indication: Product used for unknown indication
     Dosage: START DATE UNKNOWN, 500MG/400IE 0-1-0-0 (1 DOSAGE FORMS,1 IN 1 D)
     Route: 048
  7. MAGNESIUM ASPARTATE HYDROCHLORIDE [Concomitant]
     Active Substance: MAGNESIUM ASPARTATE HYDROCHLORIDE
     Indication: Product used for unknown indication
     Dosage: START DATE UNKNOWN (10 MILLIMOL,1 IN 1 D)
     Route: 048
  8. CETIRIZIN SPIRIG [Concomitant]
     Indication: Product used for unknown indication
     Dosage: START DATE UNKNOWN (10 MG 1-0-0-0) (10 MG,1 IN 1 D)
     Route: 048
  9. ALDACTONE [Concomitant]
     Active Substance: SPIRONOLACTONE
     Indication: Product used for unknown indication
     Dosage: START DATE UNKNOWN (100 MG 1-0-0-0) (100 MG,1 IN 1 D)
     Route: 048
  10. CLOBETASOL [Concomitant]
     Active Substance: CLOBETASOL
     Indication: Product used for unknown indication
     Dosage: 1 DOSAGE FORMS (1 DOSAGE FORMS,1 IN 1 D)
     Route: 061
     Dates: start: 202402
  11. UREA [Concomitant]
     Active Substance: UREA
     Indication: Product used for unknown indication
     Dosage: START DATE UNKNOWN
     Route: 061

REACTIONS (2)
  - Hepatic enzyme increased [Not Recovered/Not Resolved]
  - Overdose [Unknown]

NARRATIVE: CASE EVENT DATE: 20240130
